FAERS Safety Report 14060854 (Version 1)
Quarter: 2017Q4

REPORT INFORMATION
  Report Type: Spontaneous
  Country: ES (occurrence: ES)
  Receive Date: 20171009
  Receipt Date: 20171009
  Transmission Date: 20180321
  Serious: Yes (Hospitalization)
  Sender: FDA-Public Use
  Company Number: PHHY2017ES145135

PATIENT
  Age: 77 Year
  Sex: Female

DRUGS (2)
  1. PROMETAX [Suspect]
     Active Substance: RIVASTIGMINE
     Indication: PRODUCT USED FOR UNKNOWN INDICATION
     Dosage: UNK
     Route: 062
     Dates: start: 201702
  2. PROMETAX [Suspect]
     Active Substance: RIVASTIGMINE
     Dosage: 9.5 MG QD (PATCH 10 (CM2), 18 MG RIVASTIGMINE BASE)
     Route: 062
     Dates: start: 20170606, end: 20170612

REACTIONS (2)
  - Hyperaemia [Recovered/Resolved]
  - Incorrect dosage administered [Recovered/Resolved]

NARRATIVE: CASE EVENT DATE: 20170606
